FAERS Safety Report 11331592 (Version 1)
Quarter: 2015Q3

REPORT INFORMATION
  Report Type: Spontaneous
  Country: GB (occurrence: GB)
  Receive Date: 20150803
  Receipt Date: 20150803
  Transmission Date: 20151125
  Serious: Yes (Other)
  Sender: FDA-Public Use
  Company Number: ALCN2015GB004755

PATIENT
  Age: 81 Year
  Sex: Male
  Weight: 61 kg

DRUGS (2)
  1. MAXITROL [Suspect]
     Active Substance: DEXAMETHASONE\NEOMYCIN SULFATE\POLYMYXIN B SULFATE
     Indication: POSTERIOR CAPSULE OPACIFICATION
     Dosage: 1 GTT, QID
     Route: 047
     Dates: start: 20150701
  2. SIMVASTATIN. [Concomitant]
     Active Substance: SIMVASTATIN
     Indication: PRODUCT USED FOR UNKNOWN INDICATION
     Dosage: UNK
     Route: 065

REACTIONS (1)
  - Dizziness postural [Recovered/Resolved with Sequelae]

NARRATIVE: CASE EVENT DATE: 20150701
